FAERS Safety Report 4921346-4 (Version None)
Quarter: 2006Q1

REPORT INFORMATION
  Report Type: 
  Country: None (occurrence: None)
  Receive Date: 20060224
  Receipt Date: 20060214
  Transmission Date: 20060701
  Serious: Yes (Other)
  Sender: FDA-Public Use
  Company Number: AU-JNJFOC-20060203660

PATIENT
  Sex: Male

DRUGS (3)
  1. RISPERDAL [Suspect]
     Indication: DRUG USE FOR UNKNOWN INDICATION
  2. CHLORPROMAZINE HCL [Suspect]
     Indication: DRUG USE FOR UNKNOWN INDICATION
  3. VALIUM [Suspect]
     Indication: DRUG USE FOR UNKNOWN INDICATION

REACTIONS (3)
  - AKATHISIA [None]
  - HOMICIDAL IDEATION [None]
  - SUICIDAL IDEATION [None]
